FAERS Safety Report 8929121 (Version 2)
Quarter: 2014Q1

REPORT INFORMATION
  Report Type: Spontaneous
  Country: DE (occurrence: DE)
  Receive Date: 20121127
  Receipt Date: 20140203
  Transmission Date: 20141002
  Serious: Yes (Hospitalization, Other)
  Sender: FDA-Public Use
  Company Number: PHHY2012DE107628

PATIENT
  Age: 26 Year
  Sex: Female

DRUGS (1)
  1. GILENYA [Suspect]
     Dosage: 0.5 MG, UNK
     Route: 048

REACTIONS (8)
  - Central nervous system lesion [Unknown]
  - Brain oedema [Unknown]
  - Grand mal convulsion [Unknown]
  - CSF oligoclonal band present [Unknown]
  - Sensorimotor disorder [Unknown]
  - Cognitive disorder [Unknown]
  - Nausea [Unknown]
  - Headache [Unknown]
